FAERS Safety Report 11216156 (Version 1)
Quarter: 2015Q2

REPORT INFORMATION
  Report Type: Spontaneous
  Country: DE (occurrence: DE)
  Receive Date: 20150624
  Receipt Date: 20150624
  Transmission Date: 20150821
  Serious: Yes (Other)
  Sender: FDA-Public Use
  Company Number: DE-B.I. PHARMACEUTICALS,INC./RIDGEFIELD-2015-BI-33290GD

PATIENT
  Sex: Male
  Weight: 3.35 kg

DRUGS (5)
  1. ACETYLSALICYLIC ACID [Suspect]
     Active Substance: ASPIRIN
     Indication: EXPOSURE DURING PREGNANCY
     Route: 064
  2. SUCRALFAT [Suspect]
     Active Substance: SUCRALFATE
     Indication: EXPOSURE DURING PREGNANCY
     Route: 064
  3. IRON [Suspect]
     Active Substance: IRON
     Indication: EXPOSURE DURING PREGNANCY
     Route: 064
  4. BUSCO RANITIDINE [Suspect]
     Active Substance: RANITIDINE HYDROCHLORIDE
     Indication: EXPOSURE DURING PREGNANCY
     Route: 064
  5. FOLIC ACID. [Suspect]
     Active Substance: FOLIC ACID
     Indication: EXPOSURE DURING PREGNANCY
     Route: 064

REACTIONS (6)
  - Maternal drugs affecting foetus [None]
  - Obstructed labour [None]
  - Foetal heart rate deceleration abnormality [None]
  - Caesarean section [None]
  - Amniotic cavity infection [None]
  - Hypospadias [Unknown]
